FAERS Safety Report 8169471-1 (Version None)
Quarter: 2012Q1

REPORT INFORMATION
  Report Type: 
  Country: None (occurrence: None)
  Receive Date: 20120104
  Receipt Date: 20111107
  Transmission Date: 20120608
  Serious: Yes (Other)
  Sender: FDA-Public Use
  Company Number: 2011HGS-002752

PATIENT
  Age: 39 Year
  Sex: Female

DRUGS (1)
  1. BENLYSTA [Suspect]
     Dosage: 10 MG, 1 TOTAL INTRAVENOUS DRIP
     Route: 041
     Dates: start: 20110601, end: 20110601

REACTIONS (4)
  - RASH GENERALISED [None]
  - HYPERSENSITIVITY [None]
  - URTICARIA [None]
  - LIP SWELLING [None]
